FAERS Safety Report 9492086 (Version 5)
Quarter: 2014Q2

REPORT INFORMATION
  Report Type: Spontaneous
  Country: US (occurrence: US)
  Receive Date: 20130830
  Receipt Date: 20140402
  Transmission Date: 20141212
  Serious: No
  Sender: FDA-Public Use
  Company Number: US-PFIZER INC-2013211137

PATIENT
  Age: 49 Year
  Sex: Female
  Weight: 68.93 kg

DRUGS (24)
  1. SUTENT [Suspect]
     Indication: PANCREATIC NEUROENDOCRINE TUMOUR METASTATIC
     Dosage: 25 MG, 1X/DAY
     Route: 048
     Dates: start: 2009
  2. SUTENT [Suspect]
     Indication: PRIMITIVE NEUROECTODERMAL TUMOUR
     Dosage: UNK
     Dates: start: 201012, end: 201111
  3. SUTENT [Suspect]
     Dosage: 37.5 MG, UNK
     Dates: start: 201102, end: 201110
  4. SUTENT [Suspect]
     Dosage: 25 MG, 1X/DAY
     Dates: start: 201208
  5. SUTENT [Suspect]
     Dosage: 25 MG, 1X/DAY
     Route: 048
     Dates: start: 20130221
  6. SUTENT [Suspect]
     Dosage: 25 MG, DAILY
     Dates: start: 201309
  7. SUTENT [Suspect]
     Dosage: 25 MG, UNK
     Dates: start: 20131201
  8. SUTENT [Suspect]
     Dosage: 12.5 MG, EVERY THIRD DAY
  9. METFORMIN [Concomitant]
     Indication: TYPE 2 DIABETES MELLITUS
     Dosage: UNK
  10. INSULIN [Concomitant]
     Indication: TYPE 2 DIABETES MELLITUS
     Dosage: UNK
  11. METFORMIN HYDROCHLORIDE [Concomitant]
     Dosage: 500 MG, 2X/DAY 1 TABLET 2 TIMES DAILY WITH FOOD
     Route: 048
  12. LEVEMIR [Concomitant]
     Dosage: 100 UNIT/ML SC SOLUTION, 38 UNITS DAILY IN AM, 1X/DAY
     Route: 058
  13. BIOTIN [Concomitant]
     Dosage: 1 DF, 1X/DAY 1 TABLET DAILY
     Route: 048
  14. VITAMIN D3 [Concomitant]
     Dosage: 1000 UNITS (UNK), 1 CAPSULE DAILY
     Route: 048
  15. VITAMIN B12 [Concomitant]
     Dosage: 100 UG, UNK NONE ENTERED
     Route: 048
  16. COLACE [Concomitant]
     Dosage: 2 DF, 2X/DAY 2 TABLET
     Route: 048
  17. GLUCOSAMINE CHONDROITIN PM [Concomitant]
     Dosage: 1 DF, 1X/DAY 1 TABLET DAILY
  18. LISINOPRIL [Concomitant]
     Dosage: 5 MG, 1X/DAY 1 TABLET DAILY
     Route: 048
  19. FISH OIL [Concomitant]
     Dosage: 1000 MG, 2X/DAY 1 TABLET TWICE DAILY
     Route: 048
  20. OMEPRAZOLE [Concomitant]
     Dosage: 40 MG CPDR, 1X/DAY 1 TABLET DAILY
     Route: 048
  21. PROBIOTICS [Concomitant]
     Dosage: UNK, 1X/DAY 1 DAILY
     Route: 048
  22. IMODIUM [Concomitant]
     Dosage: UNK
  23. PRILOSEC [Concomitant]
     Dosage: UNK
  24. BLACK CUMIN OIL [Concomitant]
     Dosage: UNK

REACTIONS (17)
  - Disease progression [Unknown]
  - Pancreatic neuroendocrine tumour metastatic [Unknown]
  - Liver disorder [Unknown]
  - Lymphadenopathy [Unknown]
  - Diarrhoea [Unknown]
  - Abdominal pain [Not Recovered/Not Resolved]
  - Abdominal pain upper [Not Recovered/Not Resolved]
  - Migraine [Not Recovered/Not Resolved]
  - Headache [Unknown]
  - Nervous system disorder [Unknown]
  - Aphasia [Unknown]
  - Vision blurred [Unknown]
  - Tinnitus [Not Recovered/Not Resolved]
  - Stress [Not Recovered/Not Resolved]
  - Vascular calcification [Unknown]
  - Gastrooesophageal reflux disease [Unknown]
  - Migraine [Unknown]
